FAERS Safety Report 19204303 (Version 2)
Quarter: 2021Q2

REPORT INFORMATION
  Report Type: Spontaneous
  Country: US (occurrence: US)
  Receive Date: 20210503
  Receipt Date: 20210528
  Transmission Date: 20210717
  Serious: No
  Sender: FDA-Public Use
  Company Number: US-ASTRAZENECA-2021A326524

PATIENT
  Sex: Female
  Weight: 138.8 kg

DRUGS (1)
  1. BYDUREON [Suspect]
     Active Substance: EXENATIDE
     Indication: GLYCOSYLATED HAEMOGLOBIN INCREASED
     Dosage: 2 MG 4 COUNT
     Route: 048
     Dates: start: 2015

REACTIONS (2)
  - Device delivery system issue [Unknown]
  - Injection site haemorrhage [Unknown]
